FAERS Safety Report 24740230 (Version 1)
Quarter: 2024Q4

REPORT INFORMATION
  Report Type: Report from Study
  Country: US (occurrence: US)
  Receive Date: 20241216
  Receipt Date: 20241216
  Transmission Date: 20250114
  Serious: Yes (Hospitalization)
  Sender: BIOGEN
  Company Number: US-BIOGEN-2024BI01293572

PATIENT
  Sex: Female

DRUGS (1)
  1. TYSABRI [Suspect]
     Active Substance: NATALIZUMAB
     Indication: Multiple sclerosis
     Route: 050
     Dates: start: 20210226, end: 202410

REACTIONS (5)
  - Herpes zoster oticus [Unknown]
  - Paralysis [Unknown]
  - Multiple sclerosis [Unknown]
  - Vomiting [Unknown]
  - Vertigo [Unknown]
